FAERS Safety Report 26026197 (Version 1)
Quarter: 2025Q4

REPORT INFORMATION
  Report Type: Spontaneous
  Country: CH (occurrence: CH)
  Receive Date: 20251111
  Receipt Date: 20251111
  Transmission Date: 20260118
  Serious: Yes (Other)
  Sender: BOEHRINGER INGELHEIM
  Company Number: CH-BoehringerIngelheim-2025-BI-105664

PATIENT
  Sex: Male
  Weight: 70 kg

DRUGS (7)
  1. OFEV [Suspect]
     Active Substance: NINTEDANIB
     Indication: Idiopathic pulmonary fibrosis
  2. OFEV [Suspect]
     Active Substance: NINTEDANIB
     Indication: Interstitial lung disease
  3. RIVAROXABAN [Concomitant]
     Active Substance: RIVAROXABAN
     Indication: Product used for unknown indication
  4. CALCIUM [Concomitant]
     Active Substance: CALCIUM
     Indication: Product used for unknown indication
  5. CHOLECALCIFEROL [Concomitant]
     Active Substance: CHOLECALCIFEROL
     Indication: Product used for unknown indication
  6. METOPROLOL [Concomitant]
     Active Substance: METOPROLOL
     Indication: Product used for unknown indication
  7. TERIPARATIDE [Concomitant]
     Active Substance: TERIPARATIDE
     Indication: Product used for unknown indication

REACTIONS (4)
  - Idiopathic pulmonary fibrosis [Unknown]
  - Diarrhoea [Unknown]
  - Vomiting [Unknown]
  - Weight decreased [Unknown]
